FAERS Safety Report 5509535-1 (Version None)
Quarter: 2007Q4

REPORT INFORMATION
  Report Type: 
  Country: None (occurrence: None)
  Receive Date: 20071029
  Receipt Date: 20070815
  Transmission Date: 20080405
  Serious: No
  Sender: FDA-Public Use
  Company Number: 012902

PATIENT
  Sex: Male

DRUGS (7)
  1. PRIALT [Suspect]
     Indication: BACK PAIN
     Dosage: 0.1 G, ONCE/HOUR, INTRATHECAL
     Route: 037
     Dates: start: 20070315, end: 20070325
  2. PRIALT [Suspect]
     Indication: PAIN IN EXTREMITY
     Dosage: 0.1 G, ONCE/HOUR, INTRATHECAL
     Route: 037
     Dates: start: 20070315, end: 20070325
  3. PRIALT [Suspect]
     Indication: POST LAMINECTOMY SYNDROME
     Dosage: 0.1 G, ONCE/HOUR, INTRATHECAL
     Route: 037
     Dates: start: 20070315, end: 20070325
  4. OXYCONTIN [Concomitant]
  5. PERCOCET /00867901/ (OXYCODONE HYDROCHLORIDE) [Concomitant]
  6. ZANAFLEX [Concomitant]
  7. KLONOPIN [Concomitant]

REACTIONS (10)
  - ABASIA [None]
  - ASTHENIA [None]
  - CONFUSIONAL STATE [None]
  - DISORIENTATION [None]
  - DIZZINESS [None]
  - FATIGUE [None]
  - HEADACHE [None]
  - HYPOAESTHESIA [None]
  - MEMORY IMPAIRMENT [None]
  - URINARY RETENTION [None]
